FAERS Safety Report 15848734 (Version 1)
Quarter: 2019Q1

REPORT INFORMATION
  Report Type: Other
  Country: NZ (occurrence: NZ)
  Receive Date: 20190121
  Receipt Date: 20190121
  Transmission Date: 20190417
  Serious: Yes (Other)
  Sender: FDA-Public Use
  Company Number: NZ-APOTEX-2019AP005297

PATIENT
  Age: 64 Year
  Sex: Female

DRUGS (1)
  1. ALLOPURINOL. [Suspect]
     Active Substance: ALLOPURINOL
     Indication: PRODUCT USED FOR UNKNOWN INDICATION
     Dosage: UNK
     Route: 048

REACTIONS (5)
  - Chronic kidney disease [Unknown]
  - C-reactive protein increased [Unknown]
  - Pharyngitis [Unknown]
  - Agranulocytosis [Unknown]
  - Lymphopenia [Unknown]
